FAERS Safety Report 7435902-5 (Version None)
Quarter: 2011Q2

REPORT INFORMATION
  Report Type: 
  Country: None (occurrence: None)
  Receive Date: 20110425
  Receipt Date: 20110222
  Transmission Date: 20111010
  Serious: Yes (Hospitalization, Other)
  Sender: FDA-Public Use
  Company Number: PHHY2010US89249

PATIENT
  Sex: Female
  Weight: 54 kg

DRUGS (1)
  1. EXJADE [Suspect]
     Indication: SICKLE CELL ANAEMIA
     Dosage: 1250 MG/DAY
     Route: 048
     Dates: start: 20101014

REACTIONS (3)
  - WOUND INFECTION [None]
  - SKIN ULCER [None]
  - SICKLE CELL ANAEMIA WITH CRISIS [None]
